FAERS Safety Report 10272961 (Version 9)
Quarter: 2014Q4

REPORT INFORMATION
  Report Type: Report from Study
  Country: US (occurrence: US)
  Receive Date: 20140702
  Receipt Date: 20141024
  Transmission Date: 20150528
  Serious: Yes (Hospitalization)
  Sender: FDA-Public Use
  Company Number: US-ACTELION-A-US2014-98063

PATIENT
  Age: 55 Year
  Sex: Male

DRUGS (7)
  1. TRACLEER [Suspect]
     Active Substance: BOSENTAN\BOSENTAN MONOHYDRATE
     Indication: PULMONARY ARTERIAL HYPERTENSION
     Dosage: UNK
     Route: 048
  2. TRACLEER [Suspect]
     Active Substance: BOSENTAN\BOSENTAN MONOHYDRATE
     Dosage: UNK
     Route: 048
  3. ADCIRCA [Concomitant]
     Active Substance: TADALAFIL
  4. COUMADIN [Concomitant]
     Active Substance: WARFARIN SODIUM
  5. OXYGEN. [Concomitant]
     Active Substance: OXYGEN
     Dosage: 6 L/MIN, UNK
  6. TREPROSTINIL [Concomitant]
     Active Substance: TREPROSTINIL
  7. REMODULIN [Concomitant]
     Active Substance: TREPROSTINIL

REACTIONS (17)
  - Fluid retention [Unknown]
  - Cardiac failure [Recovered/Resolved]
  - Swelling [Unknown]
  - Presyncope [Unknown]
  - Chest discomfort [Unknown]
  - Dyspnoea [Unknown]
  - Cardiac disorder [Unknown]
  - Pulmonary arterial hypertension [Unknown]
  - Ascites [Unknown]
  - Chest pain [Recovered/Resolved]
  - Oedema peripheral [Unknown]
  - Cor pulmonale [Recovering/Resolving]
  - Dizziness [Unknown]
  - Oedema [Unknown]
  - Fatigue [Recovered/Resolved]
  - Condition aggravated [Recovering/Resolving]
  - Insomnia [Unknown]

NARRATIVE: CASE EVENT DATE: 20131125
